FAERS Safety Report 4344556-6 (Version None)
Quarter: 2004Q2

REPORT INFORMATION
  Report Type: 
  Country: None (occurrence: None)
  Receive Date: 20040422
  Receipt Date: 20040413
  Transmission Date: 20050107
  Serious: Yes (Hospitalization)
  Sender: FDA-Public Use
  Company Number: FR-MERCK-0404FRA00044

PATIENT
  Age: 82 Year
  Sex: Male

DRUGS (3)
  1. FLUINDIONE [Concomitant]
     Indication: VENTRICULAR HYPOKINESIA
     Route: 048
  2. FLUINDIONE [Concomitant]
     Route: 048
  3. VIOXX [Suspect]
     Indication: OSTEOARTHRITIS
     Route: 048

REACTIONS (2)
  - DRUG INTERACTION [None]
  - GASTRIC HAEMORRHAGE [None]
